FAERS Safety Report 4287784-0 (Version None)
Quarter: 2004Q1

REPORT INFORMATION
  Report Type: 
  Country: None (occurrence: None)
  Receive Date: 20040209
  Receipt Date: 20030924
  Transmission Date: 20041129
  Serious: No
  Sender: FDA-Public Use
  Company Number: US-GLAXOSMITHKLINE-A0427326A

PATIENT
  Sex: Female

DRUGS (3)
  1. PAXIL [Suspect]
     Dosage: 25MG PER DAY
     Route: 048
     Dates: start: 20030401, end: 20030912
  2. SUDAFED S.A. [Concomitant]
  3. MOTRIN [Concomitant]

REACTIONS (6)
  - ANGER [None]
  - CONSTIPATION [None]
  - DIARRHOEA [None]
  - IRRITABILITY [None]
  - MYDRIASIS [None]
  - PARAESTHESIA [None]
